FAERS Safety Report 13072248 (Version 1)
Quarter: 2016Q4

REPORT INFORMATION
  Report Type: Spontaneous
  Country: IT (occurrence: IT)
  Receive Date: 20161229
  Receipt Date: 20161229
  Transmission Date: 20170207
  Serious: Yes (Other)
  Sender: FDA-Public Use
  Company Number: IT-BAYER-2016-243187

PATIENT
  Age: 57 Year
  Sex: Female

DRUGS (1)
  1. CIPROXIN 500 MG [Suspect]
     Active Substance: CIPROFLOXACIN
     Indication: ANTIBIOTIC PROPHYLAXIS
     Dosage: 500 MG, ONCE
     Route: 048
     Dates: start: 20150723, end: 20150723

REACTIONS (4)
  - Oral pruritus [Recovering/Resolving]
  - Dyspnoea [Recovering/Resolving]
  - Rhinitis [Recovering/Resolving]
  - Eyelid oedema [Recovering/Resolving]

NARRATIVE: CASE EVENT DATE: 20150723
